FAERS Safety Report 4323469-X (Version None)
Quarter: 2004Q1

REPORT INFORMATION
  Report Type: 
  Country: None (occurrence: None)
  Receive Date: 20040325
  Receipt Date: 20011002
  Transmission Date: 20041129
  Serious: Yes (Hospitalization, Other)
  Sender: FDA-Public Use
  Company Number: US-BRISTOL-MYERS SQUIBB COMPANY-11057288

PATIENT
  Age: 3 Decade
  Sex: Male

DRUGS (2)
  1. STADOL [Suspect]
     Route: 045
  2. STADOL [Suspect]
     Dosage: ROUTE OF ADMINISTRATION:  INJECTION

REACTIONS (2)
  - DEPENDENCE [None]
  - SUICIDAL IDEATION [None]
